FAERS Safety Report 20768892 (Version 1)
Quarter: 2022Q2

REPORT INFORMATION
  Report Type: Spontaneous
  Country: CA (occurrence: None)
  Receive Date: 20220429
  Receipt Date: 20220429
  Transmission Date: 20220721
  Serious: Yes (Other)
  Sender: FDA-Public Use
  Company Number: CA-ROCHE-3083811

PATIENT
  Age: 58 Year
  Sex: Female

DRUGS (2)
  1. RITUXIMAB [Suspect]
     Active Substance: RITUXIMAB
     Indication: Systemic lupus erythematosus
     Route: 041
  2. TOZINAMERAN [Concomitant]
     Active Substance: TOZINAMERAN

REACTIONS (9)
  - Feeling abnormal [Unknown]
  - Head injury [Unknown]
  - Memory impairment [Unknown]
  - Mobility decreased [Unknown]
  - Off label use [Unknown]
  - Pain [Unknown]
  - Procedural pain [Unknown]
  - Seizure [Unknown]
  - Visual impairment [Unknown]
